FAERS Safety Report 20800609 (Version 1)
Quarter: 2022Q2

REPORT INFORMATION
  Report Type: Spontaneous
  Country: US (occurrence: US)
  Receive Date: 20220509
  Receipt Date: 20220509
  Transmission Date: 20220721
  Serious: Yes (Death, Other)
  Sender: FDA-Public Use
  Company Number: US-drreddys-LIT/USA/22/0149719

PATIENT
  Age: 33 Year
  Sex: Male

DRUGS (5)
  1. HEPARIN SODIUM [Suspect]
     Active Substance: HEPARIN SODIUM
     Indication: Coagulopathy
  2. FONDAPARINUX SODIUM [Suspect]
     Active Substance: FONDAPARINUX SODIUM
     Indication: Coagulopathy
  3. ARGATROBAN [Suspect]
     Active Substance: ARGATROBAN
     Indication: Coagulopathy
  4. WARFARIN [Suspect]
     Active Substance: WARFARIN
     Indication: Coagulopathy
  5. AMIODARONE HYDROCHLORIDE [Concomitant]
     Active Substance: AMIODARONE HYDROCHLORIDE
     Indication: Cardioversion

REACTIONS (2)
  - Hypercoagulation [Fatal]
  - Drug ineffective [Unknown]
